FAERS Safety Report 15098532 (Version 5)
Quarter: 2018Q4

REPORT INFORMATION
  Report Type: Report from Study
  Country: DE (occurrence: DE)
  Receive Date: 20180702
  Receipt Date: 20181224
  Transmission Date: 20190204
  Serious: Yes (Hospitalization)
  Sender: FDA-Public Use
  Company Number: DE-CELLTRION INC.-2016DE011052

PATIENT

DRUGS (4)
  1. INFLECTRA [Suspect]
     Active Substance: INFLIXIMAB-DYYB
     Indication: COLITIS ULCERATIVE
     Dosage: 250 MG, 8 WEEKS
     Route: 042
     Dates: start: 20160311, end: 20160311
  2. INFLECTRA [Suspect]
     Active Substance: INFLIXIMAB-DYYB
     Dosage: 250 MG, UNK (8 WEEKS);
     Route: 042
     Dates: start: 20160621
  3. MESALAZINE [Concomitant]
     Active Substance: MESALAMINE
     Dosage: 3 G, DAILY
  4. MESALAZINE [Concomitant]
     Active Substance: MESALAMINE
     Dosage: 3 G, DAILY

REACTIONS (4)
  - Abdominal pain [Unknown]
  - Drug ineffective [Unknown]
  - Haematochezia [Unknown]
  - Diarrhoea [Recovered/Resolved]

NARRATIVE: CASE EVENT DATE: 20160817
